FAERS Safety Report 8857653 (Version 1)
Quarter: 2012Q4

REPORT INFORMATION
  Report Type: 
  Country: US (occurrence: US)
  Receive Date: 20121024
  Receipt Date: 20121024
  Transmission Date: 20130627
  Serious: Yes (Other)
  Sender: FDA-Public Use
  Company Number: US-ASTRAZENECA-2012SE78969

PATIENT
  Age: 67 Year
  Sex: Male

DRUGS (1)
  1. LISINOPRIL [Suspect]
     Route: 048

REACTIONS (4)
  - Blood pressure increased [Unknown]
  - Sleep apnoea syndrome [Unknown]
  - Carpal tunnel syndrome [Unknown]
  - Sinus disorder [Unknown]
